FAERS Safety Report 11388746 (Version 2)
Quarter: 2015Q4

REPORT INFORMATION
  Report Type: Spontaneous
  Country: US (occurrence: US)
  Receive Date: 20150817
  Receipt Date: 20151005
  Transmission Date: 20160304
  Serious: Yes (Other)
  Sender: FDA-Public Use
  Company Number: US-BAYER-2015-395053

PATIENT
  Age: 31 Year
  Sex: Female

DRUGS (1)
  1. MIRENA [Suspect]
     Active Substance: LEVONORGESTREL
     Indication: CONTRACEPTION
     Dosage: 20 MCG/24HR, CONT
     Route: 015
     Dates: start: 20150512, end: 20150810

REACTIONS (15)
  - Mood swings [Not Recovered/Not Resolved]
  - Decreased appetite [None]
  - Libido decreased [None]
  - Disturbance in attention [None]
  - Fatigue [None]
  - Headache [None]
  - Progesterone abnormal [None]
  - Genital haemorrhage [None]
  - Abdominal pain lower [None]
  - Nausea [None]
  - Decreased interest [None]
  - Dry skin [Not Recovered/Not Resolved]
  - Alopecia areata [Not Recovered/Not Resolved]
  - Feeling abnormal [None]
  - Device expulsion [None]

NARRATIVE: CASE EVENT DATE: 2015
